FAERS Safety Report 17830770 (Version 2)
Quarter: 2020Q2

REPORT INFORMATION
  Report Type: Spontaneous
  Country: RU (occurrence: RU)
  Receive Date: 20200527
  Receipt Date: 20200601
  Transmission Date: 20200714
  Serious: Yes (Hospitalization, Other)
  Sender: FDA-Public Use
  Company Number: RU-GLAXOSMITHKLINE-RU2020EME080081

PATIENT
  Age: 2 Year
  Sex: Female

DRUGS (9)
  1. RELANIUM (DIAZEPAM) [Suspect]
     Active Substance: DIAZEPAM
     Indication: PRODUCT USED FOR UNKNOWN INDICATION
     Dosage: UNK
  2. DEPAKINE [Suspect]
     Active Substance: VALPROATE SODIUM
     Indication: SEIZURE
     Dosage: 3 ML, QD
  3. LAMICTAL [Suspect]
     Active Substance: LAMOTRIGINE
     Indication: GENERALISED TONIC-CLONIC SEIZURE
     Dosage: UNK
     Dates: start: 2018
  4. LAMICTAL [Suspect]
     Active Substance: LAMOTRIGINE
     Dosage: 100 MG, QD
  5. TUBERCULIN NOS [Suspect]
     Active Substance: TUBERCULIN PURIFIED PROTEIN DERIVATIVE
     Indication: PRODUCT USED FOR UNKNOWN INDICATION
     Dosage: UNK
  6. MEXIDOL [Suspect]
     Active Substance: EMOXYPINE SUCCINATE
     Indication: VASOCONSTRICTION
     Dosage: UNK, SINGLE (QUARTER OF TABLET)
     Dates: start: 201810
  7. DEPAKINE [Suspect]
     Active Substance: VALPROATE SODIUM
     Dosage: 11 ML, QD
  8. TOPAMAX [Suspect]
     Active Substance: TOPIRAMATE
     Indication: PRODUCT USED FOR UNKNOWN INDICATION
     Dosage: UNK
     Dates: start: 2019
  9. TOPIRAMATE. [Suspect]
     Active Substance: TOPIRAMATE
     Indication: PRODUCT USED FOR UNKNOWN INDICATION
     Dosage: UNK

REACTIONS (11)
  - Gait disturbance [Unknown]
  - Loss of consciousness [Unknown]
  - Dyspnoea [Unknown]
  - Seizure [Unknown]
  - Fall [Unknown]
  - Therapy cessation [Unknown]
  - Tonic convulsion [Unknown]
  - Contraindicated product prescribed [Unknown]
  - Lethargy [Unknown]
  - Drug ineffective [Unknown]
  - Contraindicated product administered [Unknown]

NARRATIVE: CASE EVENT DATE: 201711
